FAERS Safety Report 26000699 (Version 1)
Quarter: 2025Q4

REPORT INFORMATION
  Report Type: Spontaneous
  Country: US (occurrence: None)
  Receive Date: 20251104
  Receipt Date: 20251104
  Transmission Date: 20260117
  Serious: Yes (Death)
  Sender: FDA-CTU
  Company Number: None

PATIENT
  Age: 33 Year
  Weight: 59.4 kg

DRUGS (7)
  1. 7-HYDROXYMITRAGYNINE [Suspect]
     Active Substance: 7-HYDROXYMITRAGYNINE
     Indication: Feeling of relaxation
     Route: 048
     Dates: start: 20230307, end: 20250808
  2. 7-HYDROXYMITRAGYNINE [Suspect]
     Active Substance: 7-HYDROXYMITRAGYNINE
     Indication: Asthenia
  3. 7-HYDROXYMITRAGYNINE [Suspect]
     Active Substance: 7-HYDROXYMITRAGYNINE
     Indication: Asthenia
  4. 7-HYDROXYMITRAGYNINE [Suspect]
     Active Substance: 7-HYDROXYMITRAGYNINE
     Indication: Feeling of relaxation
     Route: 048
     Dates: start: 20250307, end: 20250808
  5. 7tabz [Concomitant]
  6. 7-HYDROXYMITRAGYNINE [Suspect]
     Active Substance: 7-HYDROXYMITRAGYNINE
     Indication: Feeling of relaxation
     Dates: start: 20250307, end: 20250808
  7. IBUPROFEN [Concomitant]
     Active Substance: IBUPROFEN

REACTIONS (2)
  - Accidental overdose [None]
  - Physical product label issue [None]

NARRATIVE: CASE EVENT DATE: 20250808
